FAERS Safety Report 7232680 (Version 2)
Quarter: 2015Q3

REPORT INFORMATION
  Report Type: Report from Study
  Country: ES (occurrence: ES)
  Receive Date: 20091229
  Receipt Date: 20150921
  Transmission Date: 20151125
  Serious: Yes (Other)
  Sender: FDA-Public Use
  Company Number: ES-ROCHE-676247

PATIENT
  Sex: Female

DRUGS (2)
  1. TRASTUZUMAB [Suspect]
     Active Substance: TRASTUZUMAB
     Indication: BREAST CANCER
     Dosage: ON 16/FEB/2007, LAST DOSE PRIOR TO SAE WAS GIVEN
     Route: 042
  2. TAMOXIFEN [Suspect]
     Active Substance: TAMOXIFEN
     Indication: BREAST CANCER
     Dosage: ON 31/JUL/2008, LAST DOSE PRIOR TO SAE WAS GIVEN.
     Route: 048

REACTIONS (1)
  - Abortion spontaneous [Unknown]
